FAERS Safety Report 7311977-9 (Version None)
Quarter: 2011Q1

REPORT INFORMATION
  Report Type: 
  Country: None (occurrence: None)
  Receive Date: 20110215
  Receipt Date: 20110215
  Transmission Date: 20110831
  Serious: Yes (Hospitalization, Other)
  Sender: FDA-Public Use
  Company Number: None

PATIENT
  Age: 10 Month
  Sex: Female
  Weight: 7.3 kg

DRUGS (1)
  1. HYLANDS TEETHING TABLETS HOMEOPATHIC HYLANDS INC. [Suspect]
     Indication: TEETHING
     Dosage: 2 TO 3 TABLETS 2 TABLETS Q1 HOUR PO
     Route: 048
     Dates: start: 20100901, end: 20101201

REACTIONS (6)
  - DYSPNOEA [None]
  - ASTHMA [None]
  - WHEEZING [None]
  - FATIGUE [None]
  - OEDEMA MOUTH [None]
  - CROUP INFECTIOUS [None]
